FAERS Safety Report 4485376-1 (Version None)
Quarter: 2004Q4

REPORT INFORMATION
  Report Type: 
  Country: None (occurrence: None)
  Receive Date: 20041025
  Receipt Date: 20041025
  Transmission Date: 20050328
  Serious: No
  Sender: FDA-Public Use
  Company Number: None

PATIENT
  Age: 43 Year
  Sex: Male
  Weight: 113.3993 kg

DRUGS (1)
  1. GABITRIL [Suspect]
     Dosage: 4 MG   ORAL   ORAL
     Route: 048

REACTIONS (1)
  - DRUG SCREEN FALSE POSITIVE [None]
